FAERS Safety Report 8721172 (Version 3)
Quarter: 2013Q3

REPORT INFORMATION
  Report Type: Report from Study
  Country: DE (occurrence: DE)
  Receive Date: 20120813
  Receipt Date: 20130712
  Transmission Date: 20140515
  Serious: Yes (Hospitalization, Other)
  Sender: FDA-Public Use
  Company Number: DE-ROCHE-775234

PATIENT
  Age: 68 Year
  Sex: Male
  Weight: 69 kg

DRUGS (8)
  1. RITUXIMAB [Suspect]
     Indication: RHEUMATOID ARTHRITIS
     Route: 042
     Dates: start: 20110106, end: 20110119
  2. VITAMIN D3 [Suspect]
     Indication: OSTEOPOROSIS PROPHYLAXIS
     Route: 048
  3. ASS [Suspect]
     Indication: PRODUCT USED FOR UNKNOWN INDICATION
     Route: 048
  4. METHOTREXATE [Suspect]
     Indication: RHEUMATOID ARTHRITIS
     Route: 058
  5. LEFLUNOMIDE [Suspect]
     Indication: RHEUMATOID ARTHRITIS
     Dosage: DAILY
     Route: 048
  6. INSUMAN RAPID [Concomitant]
     Indication: DIABETES MELLITUS
     Route: 065
  7. ISOPHANE INSULIN [Concomitant]
     Indication: DIABETES MELLITUS
     Dosage: ACCORDING TO BLOOD SUGAR
     Route: 065
  8. TAMSULOSIN [Concomitant]
     Route: 065

REACTIONS (6)
  - Post procedural haematuria [Recovered/Resolved]
  - Biopsy prostate [Recovered/Resolved]
  - Bladder tamponade [Recovered/Resolved]
  - Hyperplasia [Unknown]
  - Prostatic acid phosphatase increased [Unknown]
  - Prostate cancer [Unknown]
